FAERS Safety Report 18058340 (Version 1)
Quarter: 2020Q3

REPORT INFORMATION
  Report Type: Spontaneous
  Country: US (occurrence: US)
  Receive Date: 20200723
  Receipt Date: 20200723
  Transmission Date: 20201103
  Serious: No
  Sender: FDA-Public Use
  Company Number: US-BAUSCH-BL-2020-020696

PATIENT
  Age: 9 Decade
  Sex: Female

DRUGS (2)
  1. LATANOPROST OPHTHALMIC SOLUTION 0.005% [Suspect]
     Active Substance: LATANOPROST
     Indication: GLAUCOMA
     Dosage: STARTED ABOUT 2 YEARS AGO FROM THE DATE OF INITIAL REPORT, ONE DROP IN EACH EYE AT NIGHT
     Route: 047
     Dates: start: 2018
  2. TIMOLOL. [Concomitant]
     Active Substance: TIMOLOL
     Indication: PRODUCT USED FOR UNKNOWN INDICATION
     Dosage: RISING
     Route: 047

REACTIONS (1)
  - Feeling abnormal [Recovered/Resolved]
